FAERS Safety Report 14120441 (Version 1)
Quarter: 2017Q4

REPORT INFORMATION
  Report Type: Spontaneous
  Country: US (occurrence: US)
  Receive Date: 20171024
  Receipt Date: 20171024
  Transmission Date: 20180321
  Serious: No
  Sender: FDA-Public Use
  Company Number: US-LEXICON PHARMACEUTICALS, INC-17-1606-00935

PATIENT
  Sex: Male

DRUGS (25)
  1. BACLOFEN. [Concomitant]
     Active Substance: BACLOFEN
  2. DICLOFENAC POTASSIUM. [Concomitant]
     Active Substance: DICLOFENAC POTASSIUM
  3. LIDOCAINE. [Concomitant]
     Active Substance: LIDOCAINE
  4. MULTIVITAMIN [Concomitant]
     Active Substance: VITAMINS
  5. POTASSIUM CHLORIDE. [Concomitant]
     Active Substance: POTASSIUM CHLORIDE
  6. VIAGRA [Concomitant]
     Active Substance: SILDENAFIL CITRATE
  7. NORCO [Concomitant]
     Active Substance: ACETAMINOPHEN\HYDROCODONE BITARTRATE
  8. CREON [Concomitant]
     Active Substance: PANCRELIPASE AMYLASE\PANCRELIPASE LIPASE\PANCRELIPASE PROTEASE
  9. TELOTRISTAT ETHYL [Suspect]
     Active Substance: TELOTRISTAT ETHYL
     Route: 048
     Dates: start: 2017
  10. CHOLESTYRAMINE. [Concomitant]
     Active Substance: CHOLESTYRAMINE
  11. TEMAZEPAM. [Concomitant]
     Active Substance: TEMAZEPAM
  12. VALSARTAN. [Concomitant]
     Active Substance: VALSARTAN
  13. CENTRUM [Concomitant]
     Active Substance: VITAMINS
  14. SODIUM HYALURONATE [Concomitant]
     Active Substance: HYALURONATE SODIUM
  15. TELOTRISTAT ETHYL [Suspect]
     Active Substance: TELOTRISTAT ETHYL
     Indication: CARCINOID SYNDROME
     Route: 048
     Dates: start: 20170609
  16. SOMATULINE DEPOT [Concomitant]
     Active Substance: LANREOTIDE ACETATE
  17. URSODIOL. [Concomitant]
     Active Substance: URSODIOL
  18. METRONIDAZOLE. [Concomitant]
     Active Substance: METRONIDAZOLE
  19. OMEPRAZOLE. [Concomitant]
     Active Substance: OMEPRAZOLE
  20. TAMSULOSIN [Concomitant]
     Active Substance: TAMSULOSIN
  21. GLUCOSAMINE CHONDROITIN MSM COMPLEX [Concomitant]
  22. HALCION [Concomitant]
     Active Substance: TRIAZOLAM
  23. ELIQUIS [Concomitant]
     Active Substance: APIXABAN
  24. ZOLPIDEM TARTRATE. [Concomitant]
     Active Substance: ZOLPIDEM TARTRATE
  25. TOPROL XL [Concomitant]
     Active Substance: METOPROLOL SUCCINATE

REACTIONS (2)
  - Hypobarism [Unknown]
  - Off label use [Unknown]

NARRATIVE: CASE EVENT DATE: 2017
